FAERS Safety Report 9759676 (Version 3)
Quarter: 2015Q3

REPORT INFORMATION
  Report Type: Spontaneous
  Country: None (occurrence: US)
  Receive Date: 20131216
  Receipt Date: 20150806
  Transmission Date: 20151125
  Serious: No
  Sender: FDA-Public Use
  Company Number: US-GILEAD-2010-0028465

PATIENT
  Age: 53 Year
  Sex: Female
  Weight: 81.65 kg

DRUGS (20)
  1. FLONASE [Concomitant]
     Active Substance: FLUTICASONE PROPIONATE
  2. BUSPAR [Concomitant]
     Active Substance: BUSPIRONE HYDROCHLORIDE
  3. FUROSEMIDE. [Concomitant]
     Active Substance: FUROSEMIDE
  4. HYDROCHLOROTHIAZIDE. [Concomitant]
     Active Substance: HYDROCHLOROTHIAZIDE
  5. POTASSIUM CHLORIDE. [Concomitant]
     Active Substance: POTASSIUM CHLORIDE
  6. L-ARGININE [Concomitant]
     Active Substance: ARGININE
  7. FLAX SEED [Concomitant]
     Active Substance: FLAX SEED
  8. MULTIVITAMIN [Concomitant]
     Active Substance: VITAMINS
  9. LETAIRIS [Suspect]
     Active Substance: AMBRISENTAN
     Indication: PULMONARY ARTERIAL HYPERTENSION
     Route: 048
     Dates: start: 20080819
  10. ALVESCO [Concomitant]
     Active Substance: CICLESONIDE
  11. BENADRYL [Concomitant]
     Active Substance: DIPHENHYDRAMINE HYDROCHLORIDE
  12. ASPIRIN. [Concomitant]
     Active Substance: ASPIRIN
  13. VERAMYST [Concomitant]
     Active Substance: FLUTICASONE FUROATE
  14. ALBUTEROL. [Concomitant]
     Active Substance: ALBUTEROL
  15. ALLEGRA [Concomitant]
     Active Substance: FEXOFENADINE HYDROCHLORIDE
  16. TYLENOL [Concomitant]
     Active Substance: ACETAMINOPHEN
  17. OMEGA 3 [Concomitant]
     Active Substance: OMEGA-3 FATTY ACIDS
  18. CLARITIN [Concomitant]
     Active Substance: LORATADINE
  19. ZOLOFT [Concomitant]
     Active Substance: SERTRALINE HYDROCHLORIDE
  20. COENZYME [Concomitant]
     Active Substance: UBIDECARENONE

REACTIONS (2)
  - Asthma [Unknown]
  - Pericardial neoplasm [Unknown]
